FAERS Safety Report 4781222-7 (Version None)
Quarter: 2005Q3

REPORT INFORMATION
  Report Type: 
  Country: None (occurrence: None)
  Receive Date: 20050914
  Receipt Date: 20050106
  Transmission Date: 20060218
  Serious: Yes (Hospitalization)
  Sender: FDA-Public Use
  Company Number: 163-20785-05010082

PATIENT
  Age: 57 Year
  Sex: Male

DRUGS (2)
  1. THALOMID [Suspect]
     Indication: MALIGNANT MELANOMA
     Dosage: 250 MG, QD, ORAL; 100 MG, QD, ORAL
     Route: 048
     Dates: start: 20041229
  2. THALOMID [Suspect]
     Indication: MALIGNANT MELANOMA
     Dosage: 250 MG, QD, ORAL; 100 MG, QD, ORAL
     Route: 048
     Dates: start: 20050106

REACTIONS (3)
  - DISEASE PROGRESSION [None]
  - METASTASES TO CENTRAL NERVOUS SYSTEM [None]
  - NEUROLOGICAL SYMPTOM [None]
